FAERS Safety Report 5623594-7 (Version None)
Quarter: 2008Q1

REPORT INFORMATION
  Report Type: 
  Country: None (occurrence: None)
  Receive Date: 20080212
  Receipt Date: 20080204
  Transmission Date: 20080703
  Serious: Yes (Hospitalization)
  Sender: FDA-Public Use
  Company Number: NO-BOEHRINGER INGELHEIM GMBH, GERMANY-2008-SW-00050NO

PATIENT
  Sex: Female

DRUGS (13)
  1. ATROVENT [Suspect]
     Dates: start: 20070213
  2. VENTOLIN [Suspect]
     Route: 055
     Dates: start: 20070213
  3. TENORMIN [Concomitant]
  4. DIURAL [Concomitant]
  5. PREDNISOLONE [Concomitant]
  6. DIGITOXIN INJ [Concomitant]
  7. LEVOTHYROXINE SODIUM [Concomitant]
  8. EMCONCOR [Concomitant]
  9. ALLOPUR [Concomitant]
  10. MAREVAN [Concomitant]
  11. BRICANYL [Concomitant]
  12. COZAAR [Concomitant]
  13. ERYTHROMYCIN [Concomitant]

REACTIONS (7)
  - CARDIAC FAILURE [None]
  - DIARRHOEA [None]
  - DYSPNOEA [None]
  - FEELING ABNORMAL [None]
  - GENERAL PHYSICAL HEALTH DETERIORATION [None]
  - HYDROTHORAX [None]
  - NAUSEA [None]
